FAERS Safety Report 9466326 (Version 1)
Quarter: 2013Q3

REPORT INFORMATION
  Report Type: Spontaneous
  Country: IN (occurrence: IN)
  Receive Date: 20130820
  Receipt Date: 20130820
  Transmission Date: 20140515
  Serious: Yes (Life-Threatening)
  Sender: FDA-Public Use
  Company Number: IN-ASTRAZENECA-2013SE63662

PATIENT
  Age: 34 Year
  Sex: Female

DRUGS (2)
  1. PROPOFOL [Suspect]
     Indication: SEDATION
     Dosage: 100 UG/MIN/KG CONTINUOS INFUSION
     Route: 041
  2. FENTANYL [Suspect]
     Indication: SEDATION
     Route: 042

REACTIONS (3)
  - Cardiogenic shock [Recovered/Resolved]
  - Nausea [Unknown]
  - Vomiting [Unknown]
